FAERS Safety Report 17674953 (Version 1)
Quarter: 2020Q2

REPORT INFORMATION
  Report Type: Spontaneous
  Country: US (occurrence: US)
  Receive Date: 20200415
  Receipt Date: 20200415
  Transmission Date: 20200714
  Serious: Yes (Life-Threatening)
  Sender: FDA-Public Use
  Company Number: None

PATIENT
  Age: 48 Year
  Sex: Male

DRUGS (1)
  1. BENAZEPRIL (BENAZEPRIL HCL 20MG TAB) [Suspect]
     Active Substance: BENAZEPRIL HYDROCHLORIDE
     Indication: HYPERTENSION
     Route: 048
     Dates: start: 20150916, end: 20181103

REACTIONS (2)
  - Angioedema [None]
  - Oedema [None]

NARRATIVE: CASE EVENT DATE: 20181103
